FAERS Safety Report 15011456 (Version 1)
Quarter: 2018Q2

REPORT INFORMATION
  Report Type: Spontaneous
  Country: US (occurrence: US)
  Receive Date: 20180529
  Receipt Date: 20180529
  Transmission Date: 20180711
  Serious: Yes (Hospitalization)
  Sender: FDA-Public Use
  Company Number: None

PATIENT
  Age: 73 Year
  Sex: Male
  Weight: 87.75 kg

DRUGS (6)
  1. SOMINEX [Concomitant]
     Active Substance: DIPHENHYDRAMINE HYDROCHLORIDE
  2. FISINOPRIL [Concomitant]
  3. ASPIRIN. [Concomitant]
     Active Substance: ASPIRIN
  4. SIMVASTATIN. [Concomitant]
     Active Substance: SIMVASTATIN
  5. VITAMIN D [Concomitant]
     Active Substance: CHOLECALCIFEROL
  6. HURRICANE SPRAY [Suspect]
     Active Substance: BENZOCAINE
     Indication: LOCAL ANAESTHESIA
     Dosage: ?          OTHER ROUTE:SPRAYED INTO THROAT?

REACTIONS (6)
  - Dysphagia [None]
  - Haemoptysis [None]
  - Sensation of foreign body [None]
  - Application site pain [None]
  - Throat irritation [None]
  - Pyrexia [None]

NARRATIVE: CASE EVENT DATE: 20180316
